FAERS Safety Report 24997215 (Version 1)
Quarter: 2025Q1

REPORT INFORMATION
  Report Type: Spontaneous
  Country: FR (occurrence: FR)
  Receive Date: 20250221
  Receipt Date: 20250221
  Transmission Date: 20250409
  Serious: Yes (Hospitalization, Other)
  Sender: CELLTRION
  Company Number: None

PATIENT

DRUGS (6)
  1. INFLIXIMAB [Suspect]
     Active Substance: INFLIXIMAB
     Indication: Sarcoidosis
     Dosage: 420 G, MONTHLY (DOSAGE TEXT: D2)
     Route: 042
     Dates: start: 20240703, end: 20240719
  2. METHOTREXATE [Suspect]
     Active Substance: METHOTREXATE
     Indication: Sarcoidosis
     Dosage: 10 MG, 1/WEEK
     Route: 048
     Dates: start: 202407
  3. PREDNISONE [Suspect]
     Active Substance: PREDNISONE
     Indication: Sarcoidosis
     Route: 048
     Dates: start: 20240426
  4. FOLIC ACID [Suspect]
     Active Substance: FOLIC ACID
     Indication: Sarcoidosis
     Dosage: 5 MG, 1/WEEK
     Route: 048
     Dates: start: 202407
  5. LANSOPRAZOLE [Suspect]
     Active Substance: LANSOPRAZOLE
     Indication: Gastrooesophageal reflux disease
     Route: 048
  6. KEPPRA [Suspect]
     Active Substance: LEVETIRACETAM
     Indication: Status epilepticus
     Route: 048
     Dates: start: 20240426

REACTIONS (3)
  - Pulmonary embolism [Recovering/Resolving]
  - Venous thrombosis limb [Recovering/Resolving]
  - Intentional product use issue [Recovering/Resolving]

NARRATIVE: CASE EVENT DATE: 20240701
